FAERS Safety Report 8934090 (Version 1)
Quarter: 2012Q4

REPORT INFORMATION
  Report Type: Report from Study
  Country: US (occurrence: US)
  Receive Date: 20121129
  Receipt Date: 20121129
  Transmission Date: 20130627
  Serious: Yes (Death)
  Sender: FDA-Public Use
  Company Number: US-ROCHE-1161567

PATIENT
  Age: 68 Year
  Sex: Female
  Weight: 51.76 kg

DRUGS (24)
  1. MYCOPHENOLATE MOFETIL [Suspect]
     Indication: LUNG TRANSPLANT
     Route: 048
     Dates: start: 20070216, end: 20120313
  2. VALGANCICLOVIR [Suspect]
     Indication: TRANSPLANT
     Route: 065
  3. ACYCLOVIR [Concomitant]
     Route: 048
  4. ADVAIR DISKUS [Concomitant]
     Dosage: 250-50 mcg
     Route: 065
  5. ALENDRONATE [Concomitant]
     Route: 048
  6. AZITHROMYCIN [Concomitant]
     Dosage: 1 tablet every monday, wednesday and friday
     Route: 048
  7. INSULIN [Concomitant]
     Route: 065
  8. DILTIAZEM [Concomitant]
     Route: 048
  9. DILTZAC [Concomitant]
     Dosage: in the morning
     Route: 048
  10. FLUVIRIN [Concomitant]
     Route: 065
  11. FUROSEMIDE [Concomitant]
     Route: 048
  12. HUMALOG [Concomitant]
     Dosage: 100 unit/ml
     Route: 058
  13. ITRACONAZOLE [Concomitant]
     Route: 048
  14. LANTUS [Concomitant]
     Dosage: 100 unit/ml
     Route: 058
  15. MAGNESIUM OXIDE [Concomitant]
     Route: 048
  16. MEGESTROL ACETATE [Concomitant]
     Dosage: 800 mg daily in 20 ml in the mornign
     Route: 048
  17. NAC 600 BRAUSE ZAMBON [Concomitant]
     Route: 065
  18. OYSTER CALCIUM [Concomitant]
     Route: 048
  19. PAROXETINE [Concomitant]
     Route: 048
  20. PREDNISONE [Concomitant]
     Route: 048
  21. PRENATAL PLUS [Concomitant]
     Dosage: 27-1 mg
     Route: 048
  22. SIMVASTATIN [Concomitant]
     Route: 048
  23. SULPHAMETHOXAZOLE [Concomitant]
     Dosage: two tablets on monday, wednesday and friday
     Route: 048
  24. TACROLIMUS [Concomitant]
     Route: 048

REACTIONS (3)
  - Ovarian cancer [Fatal]
  - Weight decreased [Unknown]
  - Dyspnoea [Unknown]
